FAERS Safety Report 18536211 (Version 2)
Quarter: 2020Q4

REPORT INFORMATION
  Report Type: Spontaneous
  Country: AT (occurrence: AT)
  Receive Date: 20201124
  Receipt Date: 20201226
  Transmission Date: 20210114
  Serious: Yes (Disabling, Other)
  Sender: FDA-Public Use
  Company Number: AT-INSUD PHARMA-2011AT00256

PATIENT

DRUGS (3)
  1. CAFFEINE. [Concomitant]
     Active Substance: CAFFEINE
     Dosage: 400 MG/D
  2. LIBEREL [Suspect]
     Active Substance: DESOGESTREL\ETHINYL ESTRADIOL
     Indication: CONTRACEPTION
     Dosage: UNK
  3. SLYND [Suspect]
     Active Substance: DROSPIRENONE
     Indication: CONTRACEPTION
     Dosage: 1X1
     Route: 048
     Dates: start: 20200527, end: 20200827

REACTIONS (3)
  - Retinal vascular occlusion [Unknown]
  - Blindness unilateral [Not Recovered/Not Resolved]
  - Acute macular outer retinopathy [Not Recovered/Not Resolved]

NARRATIVE: CASE EVENT DATE: 202008
